FAERS Safety Report 5012384-4 (Version None)
Quarter: 2006Q2

REPORT INFORMATION
  Report Type: 
  Country: None (occurrence: None)
  Receive Date: 20060414
  Receipt Date: 20060119
  Transmission Date: 20061013
  Serious: No
  Sender: FDA-Public Use
  Company Number: 2006SP000351

PATIENT
  Age: 64 Year
  Sex: Female
  Weight: 81.6475 kg

DRUGS (6)
  1. LUNESTA [Suspect]
     Indication: INSOMNIA
     Dosage: 3 MG; PRN; ORAL
     Route: 048
     Dates: start: 20060112
  2. VICODIN [Concomitant]
  3. PREVACID [Concomitant]
  4. EFFEXOR [Concomitant]
  5. ZANAFLEX [Concomitant]
  6. ANASTROZOLE [Concomitant]

REACTIONS (1)
  - INSOMNIA [None]
